FAERS Safety Report 6981883-8 (Version None)
Quarter: 2010Q3

REPORT INFORMATION
  Report Type: 
  Country: None (occurrence: None)
  Receive Date: 20100914
  Receipt Date: 20091028
  Transmission Date: 20110219
  Serious: Yes (Other)
  Sender: FDA-Public Use
  Company Number: US-PFIZER INC-2009290029

PATIENT
  Age: 45 Year
  Sex: Female

DRUGS (4)
  1. LYRICA [Suspect]
     Indication: FIBROMYALGIA
     Dosage: UNK
     Dates: start: 20090101, end: 20090101
  2. LEXAPRO [Suspect]
     Indication: DEPRESSION
     Dosage: 10 MG, 1X/DAY
     Route: 048
     Dates: start: 20080101
  3. WELLBUTRIN [Suspect]
     Indication: DEPRESSION
     Dosage: 150MG AM AND 100MG PM, 2X/DAY
     Route: 048
     Dates: start: 20080101
  4. LUNESTA [Concomitant]
     Dosage: UNK

REACTIONS (2)
  - HOSTILITY [None]
  - SUICIDAL IDEATION [None]
